FAERS Safety Report 23305668 (Version 4)
Quarter: 2024Q2

REPORT INFORMATION
  Report Type: Spontaneous
  Country: DE (occurrence: DE)
  Receive Date: 20231218
  Receipt Date: 20240408
  Transmission Date: 20240716
  Serious: Yes (Other)
  Sender: FDA-Public Use
  Company Number: DE-002147023-NVSC2023DE261182

PATIENT
  Sex: Female
  Weight: 169 kg

DRUGS (1)
  1. AIMOVIG [Suspect]
     Active Substance: ERENUMAB-AOOE
     Indication: Migraine
     Dosage: UNK UNK, Q4WK
     Route: 065
     Dates: start: 202302

REACTIONS (4)
  - Breast cancer [Not Recovered/Not Resolved]
  - Nail growth abnormal [Unknown]
  - Hair growth abnormal [Unknown]
  - General physical health deterioration [Unknown]

NARRATIVE: CASE EVENT DATE: 20230701
